FAERS Safety Report 11342938 (Version 1)
Quarter: 2015Q3

REPORT INFORMATION
  Report Type: Spontaneous
  Country: US (occurrence: US)
  Receive Date: 20150805
  Receipt Date: 20150805
  Transmission Date: 20151125
  Serious: No
  Sender: FDA-Public Use
  Company Number: US-AMGEN-USASP2015052688

PATIENT
  Age: 67 Year
  Sex: Female

DRUGS (1)
  1. NPLATE [Suspect]
     Active Substance: ROMIPLOSTIM
     Indication: IMMUNE THROMBOCYTOPENIC PURPURA
     Dosage: 320 MUG, UNK
     Route: 065
     Dates: start: 201502

REACTIONS (11)
  - Platelet disorder [Unknown]
  - Arthralgia [Unknown]
  - Headache [Unknown]
  - Bone pain [Unknown]
  - Drug ineffective [Unknown]
  - Cataract [Unknown]
  - Photophobia [Unknown]
  - Weight decreased [Unknown]
  - Pain [Unknown]
  - Depression [Unknown]
  - Platelet count decreased [Unknown]
